FAERS Safety Report 5454651-6 (Version None)
Quarter: 2007Q3

REPORT INFORMATION
  Report Type: 
  Country: None (occurrence: None)
  Receive Date: 20070917
  Receipt Date: 20060728
  Transmission Date: 20080115
  Serious: No
  Sender: FDA-Public Use
  Company Number: US-ASTRAZENECA-2006UW15286

PATIENT
  Age: 59 Year
  Sex: Male
  Weight: 79.4 kg

DRUGS (5)
  1. SEROQUEL [Suspect]
     Indication: FLASHBACK
     Route: 048
     Dates: start: 20060724
  2. LISINOPRIL [Concomitant]
  3. CLONAZEPAM [Concomitant]
     Route: 048
  4. LIPITOR [Concomitant]
     Route: 048
  5. FLUOXETINE [Concomitant]

REACTIONS (1)
  - LETHARGY [None]
